FAERS Safety Report 10082157 (Version 1)
Quarter: 2014Q2

REPORT INFORMATION
  Report Type: Spontaneous
  Country: CN (occurrence: CN)
  Receive Date: 20140416
  Receipt Date: 20140416
  Transmission Date: 20141212
  Serious: Yes (Life-Threatening)
  Sender: FDA-Public Use
  Company Number: CN-PFIZER INC-2014101227

PATIENT
  Age: 80 Year
  Sex: Male

DRUGS (3)
  1. CARDURA XL [Suspect]
     Indication: BENIGN PROSTATIC HYPERPLASIA
     Dosage: 4 MG, 1X/DAY
     Route: 048
     Dates: start: 20131007, end: 20131012
  2. HYDROCHLOROTHIAZIDE, IRBESARTAN [Concomitant]
     Indication: HYPERTENSION
     Route: 048
  3. FINASTERIDE [Concomitant]
     Indication: BENIGN PROSTATIC HYPERPLASIA
     Route: 048

REACTIONS (1)
  - Orthostatic hypotension [Recovering/Resolving]
